FAERS Safety Report 11482654 (Version 1)
Quarter: 2015Q3

REPORT INFORMATION
  Report Type: Spontaneous
  Country: US (occurrence: None)
  Receive Date: 20150908
  Receipt Date: 20150908
  Transmission Date: 20151125
  Serious: Yes (Other)
  Sender: FDA-Public Use
  Company Number: None

PATIENT
  Age: 65 Year
  Sex: Female
  Weight: 58.06 kg

DRUGS (2)
  1. CENTRUM 50+ [Concomitant]
     Active Substance: VITAMINS
  2. NICORETTE [Suspect]
     Active Substance: NICOTINE
     Indication: SMOKING CESSATION THERAPY
     Dates: start: 20140512, end: 20150903

REACTIONS (2)
  - Nicotine dependence [None]
  - Alopecia [None]
